FAERS Safety Report 21948234 (Version 1)
Quarter: 2023Q1

REPORT INFORMATION
  Report Type: Spontaneous
  Country: DE (occurrence: DE)
  Receive Date: 20230203
  Receipt Date: 20230203
  Transmission Date: 20230418
  Serious: Yes (Other)
  Sender: FDA-Public Use
  Company Number: DE-ALKEM LABORATORIES LIMITED-DE-ALKEM-2023-00745

PATIENT
  Sex: Female

DRUGS (1)
  1. CEFUROXIME AXETIL [Suspect]
     Active Substance: CEFUROXIME AXETIL
     Indication: Inflammation of wound
     Dosage: UNK (FILM-COATED TABLET)
     Route: 065
     Dates: start: 2022

REACTIONS (7)
  - Circulatory collapse [Unknown]
  - Diarrhoea [Unknown]
  - Dizziness [Unknown]
  - Gastrointestinal pain [Unknown]
  - Nausea [Unknown]
  - Palpitations [Unknown]
  - Vomiting [Unknown]
